FAERS Safety Report 22987043 (Version 2)
Quarter: 2023Q4

REPORT INFORMATION
  Report Type: Spontaneous
  Country: NL (occurrence: NL)
  Receive Date: 20230926
  Receipt Date: 20231002
  Transmission Date: 20240110
  Serious: Yes (Other)
  Sender: FDA-Public Use
  Company Number: NL-BIOVITRUM-2023-NL-015156

PATIENT
  Age: 74 Year
  Sex: Male

DRUGS (6)
  1. AVATROMBOPAG [Suspect]
     Active Substance: AVATROMBOPAG
     Indication: Immune thrombocytopenia
     Dosage: 1DD20MG IN COMBINATION WITH 20MG PREDNISON
     Dates: start: 20230224
  2. AVATROMBOPAG [Suspect]
     Active Substance: AVATROMBOPAG
     Dosage: DOSE LEVEL 5 (40MG 3TIMES A WEEK AND 20MG OTHER DAYS)
     Dates: start: 20230308
  3. AVATROMBOPAG [Suspect]
     Active Substance: AVATROMBOPAG
     Dosage: 20MG 3TIMES/WEEK (DOSE LEVEL 3)
     Dates: start: 20230921
  4. AVATROMBOPAG [Suspect]
     Active Substance: AVATROMBOPAG
     Dosage: 20MG/DAY (DOSE LEVEL 4)
     Dates: start: 20230717
  5. CARBAMAZEPINE [Concomitant]
     Active Substance: CARBAMAZEPINE
     Indication: Epilepsy
     Dosage: 1200MG/DAY
     Dates: start: 1997
  6. LEVETIRACETAM [Concomitant]
     Active Substance: LEVETIRACETAM
     Indication: Epilepsy
     Dosage: TWICE A DAY
     Dates: start: 1997

REACTIONS (4)
  - Epilepsy [Unknown]
  - Road traffic accident [Unknown]
  - Fall [Unknown]
  - COVID-19 [Unknown]

NARRATIVE: CASE EVENT DATE: 20230315
